FAERS Safety Report 15191586 (Version 3)
Quarter: 2020Q3

REPORT INFORMATION
  Report Type: Report from Study
  Country: MX (occurrence: MX)
  Receive Date: 20180724
  Receipt Date: 20200823
  Transmission Date: 20201102
  Serious: Yes (Death)
  Sender: FDA-Public Use
  Company Number: MX-UCBSA-2018031403

PATIENT
  Sex: Male
  Weight: 3 kg

DRUGS (4)
  1. LEVETIRACETAM. [Suspect]
     Active Substance: LEVETIRACETAM
     Dosage: 0.7 ML, 2X/DAY (BID)
     Route: 048
  2. LEVETIRACETAM. [Suspect]
     Active Substance: LEVETIRACETAM
     Dosage: 1 ML, 3X/DAY (TID)
     Route: 048
     Dates: end: 20160610
  3. LEVETIRACETAM. [Suspect]
     Active Substance: LEVETIRACETAM
     Indication: EPILEPSY
     Dosage: 0.5 ML, 2X/DAY (BID)
     Route: 048
     Dates: start: 2016, end: 2016
  4. LEVETIRACETAM. [Suspect]
     Active Substance: LEVETIRACETAM
     Indication: SEIZURE
     Dosage: 0.3 ML, 2X/DAY (BID)
     Route: 048
     Dates: start: 2016, end: 2016

REACTIONS (3)
  - Off label use [Unknown]
  - Pneumonia [Fatal]
  - Seizure [Fatal]

NARRATIVE: CASE EVENT DATE: 2016
